FAERS Safety Report 8055284-8 (Version None)
Quarter: 2012Q1

REPORT INFORMATION
  Report Type: 
  Country: None (occurrence: None)
  Receive Date: 20120119
  Receipt Date: 20120109
  Transmission Date: 20120608
  Serious: Yes (Hospitalization, Other)
  Sender: FDA-Public Use
  Company Number: US-BAYER-2011-038429

PATIENT
  Age: 27 Year
  Sex: Female
  Weight: 79.365 kg

DRUGS (2)
  1. IBUPROFEN [Concomitant]
     Indication: HEADACHE
     Dosage: UNK
     Dates: start: 19980101, end: 20010101
  2. YAZ [Suspect]
     Indication: CONTRACEPTION

REACTIONS (9)
  - CHOLECYSTITIS CHRONIC [None]
  - ANHEDONIA [None]
  - GALLBLADDER DISORDER [None]
  - ANXIETY [None]
  - QUALITY OF LIFE DECREASED [None]
  - BILIARY DYSKINESIA [None]
  - PAIN [None]
  - DEEP VEIN THROMBOSIS [None]
  - FEAR [None]
